FAERS Safety Report 8538643-6 (Version None)
Quarter: 2012Q3

REPORT INFORMATION
  Report Type: 
  Country: None (occurrence: None)
  Receive Date: 20120718
  Receipt Date: 20120718
  Transmission Date: 20120928
  Serious: Yes (Disabling)
  Sender: FDA-Public Use
  Company Number: None

PATIENT
  Sex: Male
  Weight: 3.1752 kg

DRUGS (1)
  1. PAXIL [Suspect]
     Indication: ANXIETY
     Dosage: 20 MG 1 PER DIEM ORAL
     Route: 048
     Dates: start: 19990701, end: 20100801

REACTIONS (4)
  - MATERNAL DRUGS AFFECTING FOETUS [None]
  - CHORDEE [None]
  - HYPOSPADIAS [None]
  - AUTISM [None]
